FAERS Safety Report 25827328 (Version 3)
Quarter: 2025Q4

REPORT INFORMATION
  Report Type: Report from Study
  Country: EU (occurrence: EU)
  Receive Date: 20250920
  Receipt Date: 20251107
  Transmission Date: 20260118
  Serious: Yes (Hospitalization, Other)
  Sender: ALEXION PHARMACEUTICALS
  Company Number: EU-ASTRAZENECA-202509GLO010930PL

PATIENT
  Age: 32 Year
  Sex: Male
  Weight: 89 kg

DRUGS (3)
  1. RAVULIZUMAB [Suspect]
     Active Substance: RAVULIZUMAB
     Indication: Paroxysmal nocturnal haemoglobinuria
     Dosage: 3300 MILLIGRAM, Q8W
     Dates: start: 20240209
  2. SOLU-MEDROL [Concomitant]
     Active Substance: METHYLPREDNISOLONE SODIUM SUCCINATE
     Indication: Respiratory tract infection
     Dosage: 250 MILLIGRAM
  3. PREDNISONE [Concomitant]
     Active Substance: PREDNISONE
     Indication: Respiratory tract infection
     Dosage: 20 MILLIGRAM

REACTIONS (3)
  - Mycoplasma infection [Recovered/Resolved]
  - Klebsiella infection [Recovered/Resolved]
  - Anaemia [Unknown]

NARRATIVE: CASE EVENT DATE: 20250115
